FAERS Safety Report 4284086-3 (Version None)
Quarter: 2004Q1

REPORT INFORMATION
  Report Type: 
  Country: None (occurrence: None)
  Receive Date: 20040130
  Receipt Date: 20040120
  Transmission Date: 20041129
  Serious: Yes (Hospitalization)
  Sender: FDA-Public Use
  Company Number: US-JNJFOC-20040103891

PATIENT
  Age: 83 Year
  Sex: Female

DRUGS (12)
  1. INFLIXIMAB (INFLIXIAMB, RECOMBINANT) LYOPHILIZED POWDER [Suspect]
     Indication: RHEUMATOID ARTHRITIS
     Dosage: INTRAVENOUS
     Route: 042
     Dates: start: 20010208
  2. CELEBREX [Concomitant]
  3. CATAPRES [Concomitant]
  4. DILANTIN [Concomitant]
  5. ENALAPRIL MALEATE [Concomitant]
  6. FOLIC ACID [Concomitant]
  7. MECLIZINE [Concomitant]
  8. METHOTREXATE [Concomitant]
  9. PREMARIN [Concomitant]
  10. PREVACID [Concomitant]
  11. TYLENOL [Concomitant]
  12. FOSAMAX [Concomitant]

REACTIONS (3)
  - ASTHENIA [None]
  - BRONCHITIS [None]
  - CHRONIC OBSTRUCTIVE AIRWAYS DISEASE EXACERBATED [None]
